FAERS Safety Report 19367646 (Version 1)
Quarter: 2021Q2

REPORT INFORMATION
  Report Type: Spontaneous
  Country: SK (occurrence: SK)
  Receive Date: 20210602
  Receipt Date: 20210602
  Transmission Date: 20210717
  Serious: Yes (Hospitalization, Other)
  Sender: FDA-Public Use
  Company Number: SK-B.I. PHARMACEUTICALS,INC./RIDGEFIELD-2021-BI-105945

PATIENT
  Age: 77 Year
  Sex: Male

DRUGS (4)
  1. PRADAXA [Suspect]
     Active Substance: DABIGATRAN ETEXILATE MESYLATE
     Indication: ATRIAL FIBRILLATION
  2. ATORVASTATIN [Concomitant]
     Active Substance: ATORVASTATIN
     Indication: PRODUCT USED FOR UNKNOWN INDICATION
     Dosage: 0?0?1
  3. FENYTOIN [Concomitant]
     Active Substance: PHENYTOIN
     Indication: EPILEPSY
     Dosage: 1?0?1
  4. NEBIVOLOL. [Concomitant]
     Active Substance: NEBIVOLOL
     Indication: PRODUCT USED FOR UNKNOWN INDICATION
     Dosage: 1?0?0

REACTIONS (3)
  - Aphasia [Recovered/Resolved with Sequelae]
  - Visual impairment [Unknown]
  - Hemiplegia [Recovered/Resolved with Sequelae]
